FAERS Safety Report 18283299 (Version 3)
Quarter: 2020Q4

REPORT INFORMATION
  Report Type: Spontaneous
  Country: US (occurrence: US)
  Receive Date: 20200918
  Receipt Date: 20201125
  Transmission Date: 20210113
  Serious: Yes (Life-Threatening, Hospitalization, Other)
  Sender: FDA-Public Use
  Company Number: US-BRISTOL-MYERS SQUIBB COMPANY-BMS-2020-074323

PATIENT
  Sex: Male

DRUGS (6)
  1. OPDIVO [Suspect]
     Active Substance: NIVOLUMAB
     Dosage: 420 MILLIGRAM
     Route: 042
     Dates: start: 20200514
  2. OPDIVO [Suspect]
     Active Substance: NIVOLUMAB
     Dosage: 420 MILLIGRAM
     Route: 042
     Dates: start: 20200604
  3. OPDIVO [Suspect]
     Active Substance: NIVOLUMAB
     Dosage: 240 MILLIGRAM, Q2WK
     Route: 042
     Dates: start: 20190619, end: 20200625
  4. OPDIVO [Suspect]
     Active Substance: NIVOLUMAB
     Indication: RENAL CELL CARCINOMA
     Dosage: 423.6 MILLIGRAM, Q3WK
     Route: 042
  5. OPDIVO [Suspect]
     Active Substance: NIVOLUMAB
     Dosage: 418 MILLIGRAM
     Route: 042
     Dates: start: 20200402
  6. OPDIVO [Suspect]
     Active Substance: NIVOLUMAB
     Dosage: 420 MILLIGRAM
     Route: 042
     Dates: start: 20200423

REACTIONS (6)
  - Acute respiratory failure [Unknown]
  - Septic shock [Unknown]
  - Rhabdomyolysis [Unknown]
  - Pneumonia [Unknown]
  - Metastatic neoplasm [Unknown]
  - Acute kidney injury [Unknown]
